FAERS Safety Report 7472338-5 (Version None)
Quarter: 2011Q2

REPORT INFORMATION
  Report Type: 
  Country: None (occurrence: None)
  Receive Date: 20110511
  Receipt Date: 20110427
  Transmission Date: 20111010
  Serious: Yes (Other)
  Sender: FDA-Public Use
  Company Number: US-MYLANLABS-2011S1008776

PATIENT
  Age: 50 Year
  Sex: Male

DRUGS (10)
  1. LISINOPRIL [Suspect]
     Route: 065
  2. ATENOLOL [Suspect]
     Route: 065
  3. COGENTIN [Concomitant]
     Route: 065
  4. KLONOPIN [Concomitant]
     Route: 065
  5. JANUMET [Suspect]
     Route: 065
  6. SIMVASTATIN [Suspect]
     Route: 065
  7. RISPERDAL [Concomitant]
     Route: 065
  8. ASPIRIN [Suspect]
     Route: 065
  9. TRICOR [Suspect]
     Route: 065
  10. IRON [Concomitant]
     Route: 065

REACTIONS (3)
  - BRADYCARDIA [None]
  - RENAL FAILURE ACUTE [None]
  - HYPOTENSION [None]
